FAERS Safety Report 22357471 (Version 1)
Quarter: 2023Q2

REPORT INFORMATION
  Report Type: Spontaneous
  Country: US (occurrence: US)
  Receive Date: 20230524
  Receipt Date: 20230524
  Transmission Date: 20230721
  Serious: No
  Sender: FDA-Public Use
  Company Number: US-PURDUE PHARMA-USA-2023-0300804

PATIENT

DRUGS (2)
  1. LIDOCAINE [Suspect]
     Active Substance: LIDOCAINE
     Indication: Pain
     Dosage: WEEKLY
     Route: 003
     Dates: start: 202203
  2. LIDOCAINE [Suspect]
     Active Substance: LIDOCAINE
     Dosage: WEEKLY
     Route: 003
     Dates: start: 202203

REACTIONS (3)
  - Drug ineffective [Not Recovered/Not Resolved]
  - Product adhesion issue [Not Recovered/Not Resolved]
  - Product packaging issue [Not Recovered/Not Resolved]

NARRATIVE: CASE EVENT DATE: 20230213
